FAERS Safety Report 20753247 (Version 1)
Quarter: 2022Q2

REPORT INFORMATION
  Report Type: Spontaneous
  Country: US (occurrence: US)
  Receive Date: 20220426
  Receipt Date: 20220426
  Transmission Date: 20220721
  Serious: No
  Sender: FDA-Public Use
  Company Number: US-BRISTOL-MYERS SQUIBB COMPANY-2022-020770

PATIENT
  Age: 90 Year
  Sex: Male
  Weight: 64.86 kg

DRUGS (1)
  1. REVLIMID [Suspect]
     Active Substance: LENALIDOMIDE
     Indication: Myelodysplastic syndrome
     Dosage: 2.5MG ORAL FOR EVERY 21 DAYS ON AND 7 DAYS OFF
     Route: 048
     Dates: start: 20220406

REACTIONS (2)
  - Rash pruritic [Unknown]
  - Headache [Unknown]

NARRATIVE: CASE EVENT DATE: 20220408
